FAERS Safety Report 23027410 (Version 1)
Quarter: 2023Q4

REPORT INFORMATION
  Report Type: Spontaneous
  Country: US (occurrence: US)
  Receive Date: 20231004
  Receipt Date: 20231004
  Transmission Date: 20240110
  Serious: No
  Sender: FDA-Public Use
  Company Number: US-MELINTA THERAPEUTICS, LLC-US-MLNT-23-00341

PATIENT
  Age: 50 Year
  Sex: Female

DRUGS (4)
  1. KIMYRSA [Suspect]
     Active Substance: ORITAVANCIN DIPHOSPHATE
     Indication: Diabetic foot
     Dosage: 1200 MILLIGRAM, SINGLE
     Route: 041
     Dates: start: 20230309, end: 20230309
  2. CLINDAMYCIN [Concomitant]
     Active Substance: CLINDAMYCIN
     Indication: Diabetic foot
     Dosage: UNK, UNK
     Route: 048
     Dates: start: 202301, end: 202301
  3. TYLENOL [Concomitant]
     Active Substance: ACETAMINOPHEN
     Indication: Premedication
     Dosage: UNK, UNK
     Route: 048
     Dates: start: 20230309, end: 20230309
  4. PEPCID [Concomitant]
     Active Substance: FAMOTIDINE
     Indication: Premedication
     Dosage: UNK, UNK
     Route: 048
     Dates: start: 20230309, end: 20230309

REACTIONS (4)
  - Hypoaesthesia oral [Unknown]
  - Infusion related reaction [Unknown]
  - Pruritus [Unknown]
  - Off label use [Unknown]

NARRATIVE: CASE EVENT DATE: 20230309
